FAERS Safety Report 11225244 (Version 1)
Quarter: 2015Q2

REPORT INFORMATION
  Report Type: Spontaneous
  Country: GB (occurrence: GB)
  Receive Date: 20150629
  Receipt Date: 20150629
  Transmission Date: 20150821
  Serious: Yes (Disabling, Other)
  Sender: FDA-Public Use
  Company Number: GB-PFIZER INC-2015211039

PATIENT
  Age: 21 Year
  Sex: Female
  Weight: 51 kg

DRUGS (1)
  1. VENLAFAXINE HCL [Suspect]
     Active Substance: VENLAFAXINE HYDROCHLORIDE
     Indication: DEPRESSION
     Dosage: UNK
     Dates: start: 2010, end: 2010

REACTIONS (9)
  - Hypotonia [Recovered/Resolved]
  - Obsessive-compulsive disorder [Recovered/Resolved]
  - Muscle atrophy [Recovered/Resolved]
  - Dry eye [Recovered/Resolved]
  - Insomnia [Recovered/Resolved]
  - Abnormal loss of weight [Recovered/Resolved with Sequelae]
  - Decreased appetite [Recovered/Resolved]
  - Food craving [Recovered/Resolved]
  - Psychomotor hyperactivity [Recovered/Resolved]

NARRATIVE: CASE EVENT DATE: 2010
